FAERS Safety Report 9431331 (Version 1)
Quarter: 2013Q3

REPORT INFORMATION
  Report Type: Spontaneous
  Country: US (occurrence: US)
  Receive Date: 20130730
  Receipt Date: 20130730
  Transmission Date: 20140515
  Serious: Yes (Other)
  Sender: FDA-Public Use
  Company Number: US-BAYER-2013-089933

PATIENT
  Age: 61 Year
  Sex: Female
  Weight: 68.03 kg

DRUGS (1)
  1. BAYER EXTRA STRENGTH BACK + BODY PAIN [Suspect]
     Indication: BACK PAIN
     Dosage: 2 DF, PRN
     Route: 048
     Dates: start: 20130719, end: 20130721

REACTIONS (2)
  - Deafness bilateral [Not Recovered/Not Resolved]
  - Extra dose administered [None]
